FAERS Safety Report 6655961-7 (Version None)
Quarter: 2010Q1

REPORT INFORMATION
  Report Type: 
  Country: None (occurrence: None)
  Receive Date: 20100329
  Receipt Date: 20100319
  Transmission Date: 20100710
  Serious: Yes (Other)
  Sender: FDA-Public Use
  Company Number: PHHY2010JP14658

PATIENT
  Age: 80 Year
  Sex: Male

DRUGS (4)
  1. GLEEVEC [Suspect]
     Indication: ACUTE LYMPHOCYTIC LEUKAEMIA
     Dosage: 600 MG, UNK
     Route: 048
  2. GLEEVEC [Suspect]
     Dosage: 400 MG, UNK
     Route: 048
  3. PREDNISOLONE [Concomitant]
     Dosage: 10 MG, UNK
  4. CHEMOTHERAPEUTICS NOS [Concomitant]

REACTIONS (4)
  - DECREASED APPETITE [None]
  - ILEUS PARALYTIC [None]
  - NEUROPATHY PERIPHERAL [None]
  - PERFORMANCE STATUS DECREASED [None]
